FAERS Safety Report 12777249 (Version 1)
Quarter: 2016Q3

REPORT INFORMATION
  Report Type: Spontaneous
  Country: GB (occurrence: GB)
  Receive Date: 20160924
  Receipt Date: 20160924
  Transmission Date: 20161109
  Serious: Yes (Hospitalization)
  Sender: FDA-Public Use
  Company Number: GB-ACCORD-044171

PATIENT
  Age: 84 Year
  Sex: Male

DRUGS (15)
  1. LACTULOSE. [Concomitant]
     Active Substance: LACTULOSE
  2. CLENIL MODULITE [Concomitant]
     Active Substance: BECLOMETHASONE DIPROPIONATE
  3. OMEGA 3 [Concomitant]
     Active Substance: OMEGA-3 FATTY ACIDS
  4. AMITRIPTYLINE [Suspect]
     Active Substance: AMITRIPTYLINE
     Indication: NEURALGIA
     Dosage: NIGHT
     Route: 048
     Dates: end: 20160425
  5. MIRABEGRON [Concomitant]
     Active Substance: MIRABEGRON
  6. AMLODIPINE [Concomitant]
     Active Substance: AMLODIPINE BESYLATE
  7. BENDROFLUMETHIAZIDE [Concomitant]
     Active Substance: BENDROFLUMETHIAZIDE
  8. SALBUTAMOL [Concomitant]
     Active Substance: ALBUTEROL
  9. SIMVASTATIN. [Concomitant]
     Active Substance: SIMVASTATIN
  10. MAGNESIUM HYDROXIDE. [Concomitant]
     Active Substance: MAGNESIUM HYDROXIDE
  11. GARLIC EXTRACT [Concomitant]
     Active Substance: GARLIC
  12. ZINC OXIDE. [Concomitant]
     Active Substance: ZINC OXIDE
  13. ALFUZOSIN [Concomitant]
     Active Substance: ALFUZOSIN
  14. LANSOPRAZOLE. [Concomitant]
     Active Substance: LANSOPRAZOLE
  15. SERENOA REPENS [Concomitant]

REACTIONS (4)
  - Atrioventricular block complete [Recovered/Resolved with Sequelae]
  - Muscular weakness [Unknown]
  - Aphasia [Unknown]
  - Condition aggravated [Unknown]

NARRATIVE: CASE EVENT DATE: 201604
